FAERS Safety Report 5703258-1 (Version None)
Quarter: 2008Q2

REPORT INFORMATION
  Report Type: 
  Country: None (occurrence: None)
  Receive Date: 20080411
  Receipt Date: 20080407
  Transmission Date: 20081010
  Serious: Yes (Other)
  Sender: FDA-Public Use
  Company Number: US-BAYER-200819196NA

PATIENT
  Age: 18 Year
  Sex: Female

DRUGS (1)
  1. YAZ [Suspect]
     Indication: DRUG USE FOR UNKNOWN INDICATION
     Route: 048
     Dates: start: 20070801, end: 20080220

REACTIONS (8)
  - ANXIETY [None]
  - ASTHENIA [None]
  - DIZZINESS [None]
  - FEELING HOT [None]
  - HYPERTENSION [None]
  - MYDRIASIS [None]
  - PALLOR [None]
  - TREMOR [None]
